FAERS Safety Report 4311095-8 (Version None)
Quarter: 2004Q1

REPORT INFORMATION
  Report Type: 
  Country: None (occurrence: None)
  Receive Date: 20040302
  Receipt Date: 20040223
  Transmission Date: 20041129
  Serious: Yes (Hospitalization)
  Sender: FDA-Public Use
  Company Number: US-JNJFOC-20040205785

PATIENT
  Age: 69 Year
  Sex: Male

DRUGS (12)
  1. INFLIXIMAB (INFLIXIMAB, RECOMBINANT) LYOPHILIZED POWDER [Suspect]
     Indication: RHEUMATOID ARTHRITIS
     Dosage: INTRAVENOUS
     Route: 042
     Dates: start: 20001103
  2. PRILOSEC [Concomitant]
  3. PROATINE (ALL OTHER THERAPEUTIC PRODUCTS) [Concomitant]
  4. ALLEGRA-D [Concomitant]
  5. CITRACAL (CALCIUM CITRATE) TABLETS [Concomitant]
  6. CELEBREX [Concomitant]
  7. HYDROXYCHLOROQUINE SULFATE [Concomitant]
  8. FOLIC ACID [Concomitant]
  9. ACTONEL [Concomitant]
  10. FLOMAX [Concomitant]
  11. DECLOMYCIN [Concomitant]
  12. RHINOCORT [Concomitant]

REACTIONS (6)
  - AORTIC ANEURYSM [None]
  - HAEMATOCRIT DECREASED [None]
  - HAEMOGLOBIN DECREASED [None]
  - PLEURAL EFFUSION [None]
  - POST PROCEDURAL COMPLICATION [None]
  - UMBILICAL HERNIA [None]
